FAERS Safety Report 12952130 (Version 1)
Quarter: 2016Q4

REPORT INFORMATION
  Report Type: Spontaneous
  Country: GB (occurrence: GB)
  Receive Date: 20161117
  Receipt Date: 20161117
  Transmission Date: 20170207
  Serious: Yes (Death, Other)
  Sender: FDA-Public Use
  Company Number: GB-IPCA LABORATORIES LIMITED-IPC201611-000938

PATIENT
  Sex: Male

DRUGS (6)
  1. SERTRALINE [Suspect]
     Active Substance: SERTRALINE HYDROCHLORIDE
     Route: 064
  2. QUETIAPINE. [Suspect]
     Active Substance: QUETIAPINE
     Route: 064
  3. ZOPICLONE [Suspect]
     Active Substance: ZOPICLONE
     Route: 064
  4. PROMETHAZINE [Suspect]
     Active Substance: PROMETHAZINE\PROMETHAZINE HYDROCHLORIDE
     Route: 064
  5. PROPRANOLOL HYDROCHLORIDE. [Suspect]
     Active Substance: PROPRANOLOL HYDROCHLORIDE
     Route: 064
  6. COCAINE [Suspect]
     Active Substance: COCAINE
     Route: 064

REACTIONS (5)
  - Oligohydramnios [Unknown]
  - Foetal growth restriction [Unknown]
  - Foetal death [Fatal]
  - Ascites [Unknown]
  - Foetal exposure during pregnancy [Unknown]
